FAERS Safety Report 6993631-6 (Version None)
Quarter: 2010Q3

REPORT INFORMATION
  Report Type: 
  Country: None (occurrence: None)
  Receive Date: 20100917
  Receipt Date: 20100412
  Transmission Date: 20110219
  Serious: Yes (Other)
  Sender: FDA-Public Use
  Company Number: US-ASTRAZENECA-2009UW16495

PATIENT
  Age: 498 Month
  Sex: Male

DRUGS (5)
  1. SEROQUEL [Suspect]
     Dosage: 25-50 AT NIGHT
     Route: 048
     Dates: start: 20010516
  2. RISPERDAL [Concomitant]
     Dates: start: 20010509
  3. ZYPREXA [Concomitant]
     Dosage: 2.5-10 MG DAILY
     Dates: start: 20010619
  4. SERZONE [Concomitant]
     Indication: ANXIETY
     Dosage: 50-300 MG DAILY
     Dates: start: 20010730
  5. CYMBALTA [Concomitant]
     Dosage: 30-60 MG DAILY
     Dates: start: 20050926

REACTIONS (3)
  - DIABETES MELLITUS [None]
  - DIABETES MELLITUS INADEQUATE CONTROL [None]
  - KETOACIDOSIS [None]
